FAERS Safety Report 22400949 (Version 1)
Quarter: 2023Q2

REPORT INFORMATION
  Report Type: Spontaneous
  Country: IT (occurrence: IT)
  Receive Date: 20230602
  Receipt Date: 20230602
  Transmission Date: 20230722
  Serious: Yes (Other)
  Sender: FDA-Public Use
  Company Number: IT-Accord-359207

PATIENT
  Age: 41 Year
  Sex: Female

DRUGS (3)
  1. KEYTRUDA [Suspect]
     Active Substance: PEMBROLIZUMAB
     Dosage: 200 MILLIGRAM, Q3W
     Dates: start: 20230330, end: 20230330
  2. PACLITAXEL [Suspect]
     Active Substance: PACLITAXEL
     Dosage: DOSE: 209.06 MILLIGRAM, Q21D ON DAYS 1, 8, 15
     Dates: start: 20230330, end: 20230413
  3. CARBOPLATIN [Suspect]
     Active Substance: CARBOPLATIN
     Dosage: DOSE: 137.6 MILLIGRAM, Q21D ON DAYS 1, 8, 15
     Dates: start: 20230330, end: 20230413

REACTIONS (3)
  - Aspartate aminotransferase increased [Unknown]
  - Gamma-glutamyltransferase increased [Unknown]
  - Alanine aminotransferase increased [Unknown]

NARRATIVE: CASE EVENT DATE: 20230426
